FAERS Safety Report 14099105 (Version 2)
Quarter: 2017Q4

REPORT INFORMATION
  Report Type: Report from Study
  Country: DE (occurrence: DE)
  Receive Date: 20171017
  Receipt Date: 20171101
  Transmission Date: 20180321
  Serious: Yes (Other)
  Sender: FDA-Public Use
  Company Number: DE-PURDUE-GBR-2017-0049775

PATIENT
  Age: 33 Year
  Sex: Male

DRUGS (3)
  1. SUBSTITOL [Suspect]
     Active Substance: MORPHINE SULFATE
     Indication: PRODUCT SUBSTITUTION
     Dosage: 800 MG, DAILY
     Route: 048
     Dates: start: 20170930
  2. SUBSTITOL [Suspect]
     Active Substance: MORPHINE SULFATE
     Dosage: 800 MG, DAILY
     Route: 048
     Dates: start: 20170529, end: 20170605
  3. SUBSTITOL [Suspect]
     Active Substance: MORPHINE SULFATE
     Dosage: 1000 MG, DAILY
     Route: 048
     Dates: start: 20170609, end: 20170929

REACTIONS (5)
  - Abdominal pain upper [Recovered/Resolved]
  - Nightmare [Recovered/Resolved]
  - Drug withdrawal syndrome [Recovered/Resolved]
  - Drug dependence [Recovered/Resolved]
  - Insomnia [Recovered/Resolved]

NARRATIVE: CASE EVENT DATE: 20170906
